FAERS Safety Report 9666337 (Version 1)
Quarter: 2013Q4

REPORT INFORMATION
  Report Type: Spontaneous
  Country: GB (occurrence: GB)
  Receive Date: 20131104
  Receipt Date: 20131104
  Transmission Date: 20140711
  Serious: Yes (Death)
  Sender: FDA-Public Use
  Company Number: GB-BRISTOL-MYERS SQUIBB COMPANY-19697036

PATIENT
  Age: 33 Year
  Sex: Female

DRUGS (7)
  1. YERVOY [Suspect]
     Indication: METASTATIC MALIGNANT MELANOMA
     Dates: end: 20130604
  2. ALPRAZOLAM [Concomitant]
  3. ESOMEPRAZOLE [Concomitant]
  4. TRAMADOL [Concomitant]
  5. ATROVENT [Concomitant]
  6. PARACETAMOL [Concomitant]
  7. STILNOCT [Concomitant]

REACTIONS (1)
  - Death [Fatal]
